FAERS Safety Report 24877067 (Version 2)
Quarter: 2025Q3

REPORT INFORMATION
  Report Type: Report from Study
  Country: US (occurrence: US)
  Receive Date: 20250123
  Receipt Date: 20250911
  Transmission Date: 20251020
  Serious: Yes (Hospitalization)
  Sender: AMGEN
  Company Number: US-AMGEN-USASL2024237540

PATIENT
  Age: 55 Year
  Sex: Female

DRUGS (1)
  1. UPLIZNA [Suspect]
     Active Substance: INEBILIZUMAB-CDON
     Indication: Neuromyelitis optica spectrum disorder
     Route: 040
     Dates: start: 20240925

REACTIONS (13)
  - Rhinovirus infection [Unknown]
  - Bronchitis [Unknown]
  - Pneumonia [Unknown]
  - Feeling hot [Unknown]
  - Erythema [Unknown]
  - Swelling [Unknown]
  - Panic attack [Unknown]
  - Skin burning sensation [Unknown]
  - Visual impairment [Unknown]
  - Eye pain [Unknown]
  - Eye irritation [Unknown]
  - Pruritus [Unknown]
  - Sleep disorder due to a general medical condition [Unknown]

NARRATIVE: CASE EVENT DATE: 20240101
